FAERS Safety Report 6183588-2 (Version None)
Quarter: 2009Q2

REPORT INFORMATION
  Report Type: 
  Country: None (occurrence: None)
  Receive Date: 20090508
  Receipt Date: 20090427
  Transmission Date: 20091009
  Serious: Yes (Other)
  Sender: FDA-Public Use
  Company Number: US-PFIZER INC-2009155639

PATIENT
  Sex: Male
  Weight: 29.483 kg

DRUGS (6)
  1. GENOTROPIN [Suspect]
     Indication: BODY HEIGHT BELOW NORMAL
     Dosage: 2.2 MG, 1X/DAY
     Route: 058
     Dates: end: 20090101
  2. GENOTROPIN [Suspect]
     Dosage: 1.4 MG, UNK
     Dates: start: 20090101
  3. RISPERIDONE [Concomitant]
     Dosage: UNK
  4. METHYLPHENIDATE HCL [Concomitant]
     Dosage: UNK
  5. GUANFACINE HYDROCHLORIDE [Concomitant]
     Dosage: UNK
  6. SERTRALINE [Concomitant]
     Dosage: 25 MG, 2X/DAY

REACTIONS (1)
  - PAPILLOEDEMA [None]
